FAERS Safety Report 8162461-4 (Version None)
Quarter: 2012Q1

REPORT INFORMATION
  Report Type: 
  Country: None (occurrence: None)
  Receive Date: 20120224
  Receipt Date: 20120213
  Transmission Date: 20120608
  Serious: Yes (Other)
  Sender: FDA-Public Use
  Company Number: US-JNJFOC-20111206589

PATIENT
  Sex: Female

DRUGS (5)
  1. REMICADE [Suspect]
     Indication: RHEUMATOID ARTHRITIS
     Route: 042
     Dates: start: 20050406, end: 20111215
  2. BROMALINE [Concomitant]
     Route: 065
  3. IBUPROFEN [Concomitant]
     Indication: PAIN
     Route: 065
  4. CELEBREX [Concomitant]
     Indication: PAIN
     Route: 065
     Dates: start: 20110501
  5. HYDROCODONE BITARTRATE [Concomitant]
     Indication: PAIN
     Dosage: DOSE:5/500
     Route: 065
     Dates: start: 20110501

REACTIONS (2)
  - CYST [None]
  - AUTOIMMUNE HEPATITIS [None]
